FAERS Safety Report 7157478-2 (Version None)
Quarter: 2010Q4

REPORT INFORMATION
  Report Type: 
  Country: None (occurrence: None)
  Receive Date: 20101214
  Receipt Date: 20101202
  Transmission Date: 20110411
  Serious: Yes (Hospitalization)
  Sender: FDA-Public Use
  Company Number: B0688979A

PATIENT
  Age: 21 Month
  Sex: Male

DRUGS (5)
  1. LEVETIRACETAM [Suspect]
     Route: 065
  2. CETIRIZINE HCL [Suspect]
     Route: 065
  3. RANITIDINE [Suspect]
     Route: 065
  4. DEXCHLORPHENIRAMINE MALEATE [Suspect]
     Route: 065
  5. CROMOLYN SODIUM [Suspect]
     Route: 065

REACTIONS (5)
  - DERMATITIS BULLOUS [None]
  - DIFFUSE CUTANEOUS MASTOCYTOSIS [None]
  - FLUSHING [None]
  - HYPOTONIA [None]
  - SOMNOLENCE [None]
